FAERS Safety Report 10992271 (Version 1)
Quarter: 2015Q2

REPORT INFORMATION
  Report Type: Report from Study
  Country: US (occurrence: US)
  Receive Date: 20150406
  Receipt Date: 20150406
  Transmission Date: 20150821
  Serious: Yes (Other)
  Sender: FDA-Public Use
  Company Number: PHEH2015US005847

PATIENT
  Age: 34 Year
  Sex: Female
  Weight: 113.38 kg

DRUGS (2)
  1. IBUPROFEN. [Concomitant]
     Active Substance: IBUPROFEN
     Indication: PRODUCT USED FOR UNKNOWN INDICATION
     Dosage: 200 MG, UNK
     Route: 065
  2. GILENYA [Suspect]
     Active Substance: FINGOLIMOD HYDROCHLORIDE
     Indication: MULTIPLE SCLEROSIS
     Dosage: 0.5 MG, QD
     Route: 048
     Dates: start: 20130829

REACTIONS (13)
  - Relapsing-remitting multiple sclerosis [Unknown]
  - Malaise [Unknown]
  - Vitamin D deficiency [Unknown]
  - White blood cell count decreased [Unknown]
  - Muscular weakness [Recovered/Resolved]
  - Obesity [Unknown]
  - Paraesthesia [Recovered/Resolved]
  - Hypoaesthesia [Recovered/Resolved]
  - Pupillary reflex impaired [Unknown]
  - Fatigue [Unknown]
  - Lymphocyte count decreased [Unknown]
  - JC virus test positive [Unknown]
  - Central nervous system lesion [Unknown]

NARRATIVE: CASE EVENT DATE: 20141028
